FAERS Safety Report 4458935-X (Version None)
Quarter: 2004Q3

REPORT INFORMATION
  Report Type: 
  Country: None (occurrence: None)
  Receive Date: 20040923
  Receipt Date: 20040923
  Transmission Date: 20050211
  Serious: No
  Sender: FDA-Public Use
  Company Number: None

PATIENT

DRUGS (2)
  1. DILTIAZEM EXTENDED RELEASE [Suspect]
     Dosage: ONCE A DAY
  2. DILTIAZEM EXTENDED RELEASE [Suspect]
     Dosage: TWICE A DAY

REACTIONS (2)
  - CONFUSIONAL STATE [None]
  - MEDICATION ERROR [None]
